FAERS Safety Report 14773548 (Version 1)
Quarter: 2018Q2

REPORT INFORMATION
  Report Type: Spontaneous
  Country: US (occurrence: US)
  Receive Date: 20180411
  Receipt Date: 20180411
  Transmission Date: 20180711
  Serious: Yes (Other)
  Sender: FDA-Public Use
  Company Number: None

PATIENT
  Sex: Female

DRUGS (11)
  1. RESTORA [Concomitant]
  2. MORPHINE SULF [Concomitant]
     Active Substance: MORPHINE SULFATE
  3. CEVIME [Concomitant]
  4. HUMIRA [Suspect]
     Active Substance: ADALIMUMAB
     Indication: MUSCLE SPASMS
     Route: 058
     Dates: start: 20180112
  5. GABAPENTIN. [Concomitant]
     Active Substance: GABAPENTIN
  6. ESOMEPRA [Concomitant]
     Active Substance: ESOMEPRAZOLE
  7. OXYCODONE [Concomitant]
     Active Substance: OXYCODONE
  8. LINZESS [Concomitant]
     Active Substance: LINACLOTIDE
  9. WARFARIN [Concomitant]
     Active Substance: WARFARIN
  10. TOPIRAMATE. [Concomitant]
     Active Substance: TOPIRAMATE
  11. TRAZODONE [Concomitant]
     Active Substance: TRAZODONE HYDROCHLORIDE

REACTIONS (2)
  - Surgery [None]
  - Condition aggravated [None]
